FAERS Safety Report 5270915-3 (Version None)
Quarter: 2007Q1

REPORT INFORMATION
  Report Type: 
  Country: None (occurrence: None)
  Receive Date: 20070309
  Receipt Date: 20070227
  Transmission Date: 20070707
  Serious: Yes (Other)
  Sender: FDA-Public Use
  Company Number: THYM-11339

PATIENT
  Age: 58 Year
  Sex: Female

DRUGS (1)
  1. THYMOGLOBULIN [Suspect]
     Indication: RENAL TRANSPLANT
     Dosage: 50 MG QD IV
     Route: 042
     Dates: start: 20070226

REACTIONS (4)
  - ERYTHEMA [None]
  - PERIORBITAL DISORDER [None]
  - RASH [None]
  - SWELLING FACE [None]
